FAERS Safety Report 12224033 (Version 1)
Quarter: 2016Q1

REPORT INFORMATION
  Report Type: Spontaneous
  Country: US (occurrence: US)
  Receive Date: 20160330
  Receipt Date: 20160330
  Transmission Date: 20160526
  Serious: No
  Sender: FDA-Public Use
  Company Number: US-ELI_LILLY_AND_COMPANY-US201603004744

PATIENT
  Sex: Male

DRUGS (2)
  1. HUMALOG [Suspect]
     Active Substance: INSULIN LISPRO
     Indication: DIABETES MELLITUS
     Dosage: 28 U, TID
     Route: 065
     Dates: start: 2013
  2. TOUJEO [Concomitant]
     Active Substance: INSULIN GLARGINE
     Dosage: 80 U, QD

REACTIONS (1)
  - Underdose [Unknown]
